FAERS Safety Report 24055375 (Version 1)
Quarter: 2024Q3

REPORT INFORMATION
  Report Type: Spontaneous
  Country: NL (occurrence: NL)
  Receive Date: 20240705
  Receipt Date: 20240705
  Transmission Date: 20241017
  Serious: Yes (Death)
  Sender: ALNYLAM PHARMACEUTICALS
  Company Number: NL-ALNYLAM PHARMACEUTICALS, INC.-ALN-2024-003666

PATIENT

DRUGS (1)
  1. ONPATTRO [Suspect]
     Active Substance: PATISIRAN SODIUM
     Indication: Product used for unknown indication
     Dosage: UNK
     Route: 065

REACTIONS (6)
  - Death [Fatal]
  - Injury [Unknown]
  - Pelvic bone injury [Unknown]
  - General physical health deterioration [Unknown]
  - Palliative sedation [Unknown]
  - Fall [Unknown]
